FAERS Safety Report 18257740 (Version 1)
Quarter: 2020Q3

REPORT INFORMATION
  Report Type: Spontaneous
  Country: US (occurrence: US)
  Receive Date: 20200911
  Receipt Date: 20200911
  Transmission Date: 20201103
  Serious: Yes (Death)
  Sender: FDA-Public Use
  Company Number: None

PATIENT
  Age: 3 Month
  Sex: Male
  Weight: 89.8 kg

DRUGS (22)
  1. CALCIUM ACETATE. [Concomitant]
     Active Substance: CALCIUM ACETATE
     Dates: start: 20200901, end: 20200903
  2. DEXAMETHASONE. [Concomitant]
     Active Substance: DEXAMETHASONE
     Dates: start: 20200827, end: 20200903
  3. FAMOTIDINE. [Concomitant]
     Active Substance: FAMOTIDINE
     Dates: start: 20200827, end: 20200831
  4. VICTOZA [Concomitant]
     Active Substance: LIRAGLUTIDE
     Dates: start: 20200827, end: 20200831
  5. LEVEMIR [Concomitant]
     Active Substance: INSULIN DETEMIR
     Dates: start: 20200827, end: 20200903
  6. MYCOPHENOLATE [Concomitant]
     Active Substance: MYCOPHENOLIC ACID
     Dates: start: 20200827, end: 20200901
  7. NIMBEX [Concomitant]
     Active Substance: CISATRACURIUM BESYLATE
     Dates: start: 20200831, end: 20200902
  8. DORNASE ALPHA [Concomitant]
     Dates: start: 20200902, end: 20200903
  9. DOXYCYCLINE. [Concomitant]
     Active Substance: DOXYCYCLINE
     Dates: start: 20200828, end: 20200903
  10. FOLIC ACID. [Concomitant]
     Active Substance: FOLIC ACID
     Dates: start: 20200830, end: 20200830
  11. FENTANYL. [Concomitant]
     Active Substance: FENTANYL
     Dates: start: 20200901, end: 20200903
  12. HYDROXYCHLOROQUINE [Concomitant]
     Active Substance: HYDROXYCHLOROQUINE
     Dates: start: 20200828, end: 20200901
  13. KETAMINE [Concomitant]
     Active Substance: KETAMINE
     Dates: start: 20200831, end: 20200903
  14. REMDESIVIR. [Suspect]
     Active Substance: REMDESIVIR
     Indication: COVID-19
     Dates: start: 20200830, end: 20200903
  15. CEFEPIME [Concomitant]
     Active Substance: CEFEPIME HYDROCHLORIDE
     Dates: start: 20200831, end: 20200903
  16. ESCITALOPRAM [Concomitant]
     Active Substance: ESCITALOPRAM OXALATE
     Dates: start: 20200827, end: 20200901
  17. FUROSEMIDE. [Concomitant]
     Active Substance: FUROSEMIDE
     Dates: start: 20200827, end: 20200831
  18. GABAPENTIN. [Concomitant]
     Active Substance: GABAPENTIN
     Dates: start: 20200827, end: 20200903
  19. EPINEPHRINE. [Concomitant]
     Active Substance: EPINEPHRINE
     Dates: start: 20200901, end: 20200903
  20. HEPARIN [Concomitant]
     Active Substance: HEPARIN SODIUM
     Dates: start: 20200828, end: 20200903
  21. HYDRALAZINE [Concomitant]
     Active Substance: HYDRALAZINE HYDROCHLORIDE
     Dates: start: 20200827, end: 20200901
  22. ISOSORBIDE. [Concomitant]
     Active Substance: ISOSORBIDE
     Dates: start: 20200827, end: 20200902

REACTIONS (2)
  - Disease complication [None]
  - Respiratory failure [None]

NARRATIVE: CASE EVENT DATE: 20200903
